FAERS Safety Report 8777673 (Version 1)
Quarter: 2012Q4

REPORT INFORMATION
  Report Type: 
  Country: US (occurrence: US)
  Receive Date: 20120912
  Receipt Date: 20120912
  Transmission Date: 20130627
  Serious: No
  Sender: FDA-Public Use
  Company Number: US-VERTEX PHARMACEUTICAL INC.-AE-2012-003928

PATIENT
  Age: 56 Year
  Sex: Female

DRUGS (3)
  1. VX-950 [Suspect]
     Indication: HEPATITIS C
     Dosage: 750 mg, UNK
     Route: 048
     Dates: start: 20120309, end: 20120601
  2. RIBAVIRIN [Concomitant]
     Indication: HEPATITIS C
     Dosage: UNK mg, UNK
     Route: 048
     Dates: start: 20120309
  3. PEGASYS [Concomitant]
     Indication: HEPATITIS C
     Dosage: UNK
     Dates: start: 20120309

REACTIONS (5)
  - Influenza like illness [Not Recovered/Not Resolved]
  - Dizziness [Not Recovered/Not Resolved]
  - Fatigue [Not Recovered/Not Resolved]
  - Rash pruritic [Not Recovered/Not Resolved]
  - Nausea [Not Recovered/Not Resolved]
